FAERS Safety Report 4990737-8 (Version None)
Quarter: 2006Q2

REPORT INFORMATION
  Report Type: 
  Country: None (occurrence: None)
  Receive Date: 20060427
  Receipt Date: 20060426
  Transmission Date: 20061013
  Serious: Yes (Death)
  Sender: FDA-Public Use
  Company Number: HQWYE756110FEB06

PATIENT
  Age: 48 Year
  Sex: Male

DRUGS (2)
  1. CORDAREX (AMIODARONE, TABLET) [Suspect]
     Indication: ARRHYTHMIA PROPHYLAXIS
     Dosage: 200 MG 1X PER 1 DAY
     Route: 048
     Dates: start: 20051219, end: 20060127
  2. PREDNISOLONE [Concomitant]

REACTIONS (5)
  - CARDIAC FAILURE [None]
  - INTERSTITIAL LUNG DISEASE [None]
  - LUNG INFECTION [None]
  - LUNG INFILTRATION [None]
  - SEPSIS [None]
